FAERS Safety Report 5821668-9 (Version None)
Quarter: 2008Q3

REPORT INFORMATION
  Report Type: 
  Country: None (occurrence: None)
  Receive Date: 20080724
  Receipt Date: 20080714
  Transmission Date: 20090109
  Serious: Yes (Hospitalization)
  Sender: FDA-Public Use
  Company Number: JP-PURDUE-MAG_2008_0000702

PATIENT
  Age: 85 Year
  Sex: Male

DRUGS (9)
  1. OXYCODONE HCL [Suspect]
     Indication: CANCER PAIN
     Dosage: 10 MG, DAILY
     Route: 048
     Dates: start: 20080616, end: 20080624
  2. NOVAMIN [Concomitant]
     Indication: NAUSEA
     Dosage: 10 MG, DAILY
     Route: 048
     Dates: start: 20080616, end: 20080624
  3. MUCOSTA [Concomitant]
     Indication: GASTRITIS
     Dosage: 200 MG, DAILY
     Route: 048
     Dates: start: 20080418
  4. PARIET [Concomitant]
     Indication: REFLUX OESOPHAGITIS
     Dosage: 10 MG, DAILY
     Route: 048
     Dates: start: 20070622
  5. CELECOX [Concomitant]
     Indication: CANCER PAIN
     Dosage: 200 MG, DAILY
     Route: 048
     Dates: start: 20080418
  6. CLARITHROMYCIN [Concomitant]
     Indication: PULMONARY FIBROSIS
     Dosage: 200 MG, DAILY
     Route: 048
     Dates: start: 20050920, end: 20070624
  7. MICARDIS [Concomitant]
     Indication: HYPERTENSION
     Dosage: 20 MG, DAILY
     Route: 048
     Dates: start: 20060512, end: 20070624
  8. UNIPHYL [Concomitant]
     Indication: BRONCHIAL DISORDER
     Dosage: 400 MG, DAILY
     Route: 048
     Dates: start: 20071012
  9. MYSLEE [Concomitant]
     Indication: INSOMNIA
     Dosage: 10 MG, DAILY
     Route: 048

REACTIONS (1)
  - LIVER DISORDER [None]
